FAERS Safety Report 16333730 (Version 1)
Quarter: 2019Q2

REPORT INFORMATION
  Report Type: Spontaneous
  Country: MX (occurrence: MX)
  Receive Date: 20190520
  Receipt Date: 20190520
  Transmission Date: 20190711
  Serious: Yes (Other)
  Sender: FDA-Public Use
  Company Number: MX-ASTRAZENECA-2019SE74371

PATIENT
  Age: 59 Year
  Sex: Female
  Weight: 62 kg

DRUGS (5)
  1. NOLVADEX [Suspect]
     Active Substance: TAMOXIFEN CITRATE
     Indication: BREAST CANCER
     Route: 048
     Dates: start: 2016
  2. NEXIUM MUPS [Suspect]
     Active Substance: ESOMEPRAZOLE
     Indication: DYSPEPSIA
     Route: 048
     Dates: start: 2009
  3. NEXIUM MUPS [Suspect]
     Active Substance: ESOMEPRAZOLE
     Indication: DYSPEPSIA
     Dosage: 80.0MG AS REQUIRED
     Route: 048
     Dates: start: 2009
  4. ARIMIDEX [Suspect]
     Active Substance: ANASTROZOLE
     Indication: BREAST CANCER
     Route: 048
     Dates: start: 2011, end: 2016
  5. PINAVERIUM BROMIDE [Concomitant]
     Active Substance: PINAVERIUM BROMIDE
     Indication: GASTROINTESTINAL DISORDER
     Route: 048
     Dates: start: 2009

REACTIONS (5)
  - Breast cancer female [Unknown]
  - Breast cancer female [Not Recovered/Not Resolved]
  - Breast cancer recurrent [Unknown]
  - Drug ineffective [Unknown]
  - Overdose [Not Recovered/Not Resolved]

NARRATIVE: CASE EVENT DATE: 2009
